FAERS Safety Report 25021310 (Version 1)
Quarter: 2025Q1

REPORT INFORMATION
  Report Type: Spontaneous
  Country: JP (occurrence: JP)
  Receive Date: 20250228
  Receipt Date: 20250228
  Transmission Date: 20250409
  Serious: Yes (Other)
  Sender: SANDOZ
  Company Number: JP-SANDOZ-SDZ2023JP059910

PATIENT
  Sex: Male

DRUGS (9)
  1. APREMILAST [Suspect]
     Active Substance: APREMILAST
     Indication: Psoriasis
     Route: 065
  2. APREMILAST [Suspect]
     Active Substance: APREMILAST
     Route: 065
  3. APREMILAST [Suspect]
     Active Substance: APREMILAST
     Route: 065
  4. CYCLOSPORINE [Suspect]
     Active Substance: CYCLOSPORINE
     Indication: Psoriasis
     Route: 048
  5. CYCLOSPORINE [Suspect]
     Active Substance: CYCLOSPORINE
     Route: 048
  6. CYCLOSPORINE [Suspect]
     Active Substance: CYCLOSPORINE
     Route: 048
  7. METHOTREXATE [Suspect]
     Active Substance: METHOTREXATE
     Indication: Psoriasis
     Route: 065
  8. APREMILAST [Concomitant]
     Active Substance: APREMILAST
     Indication: Psoriasis
     Route: 048
  9. APREMILAST [Concomitant]
     Active Substance: APREMILAST
     Route: 048

REACTIONS (4)
  - Renal impairment [Unknown]
  - Delirium tremens [Unknown]
  - Therapeutic response decreased [Unknown]
  - Therapeutic product effect incomplete [Unknown]
